FAERS Safety Report 7957912-1 (Version None)
Quarter: 2011Q4

REPORT INFORMATION
  Report Type: 
  Country: None (occurrence: None)
  Receive Date: 20111130
  Receipt Date: 20111114
  Transmission Date: 20120403
  Serious: Yes (Hospitalization)
  Sender: FDA-Public Use
  Company Number: 2011ES0353

PATIENT
  Age: 35 Year
  Sex: Female
  Weight: 55 kg

DRUGS (7)
  1. KINERET [Suspect]
     Indication: IMMUNE RECONSTITUTION SYNDROME
     Dosage: 100 MG (100 MG,1 IN 1 D)
     Dates: start: 20110829, end: 20111010
  2. TRAMADOL HYDROCHLORIDE [Suspect]
     Indication: IMMUNE RECONSTITUTION SYNDROME
     Dosage: 150 MG (150 MG,1 IN 1 D) ORAL
     Route: 048
     Dates: start: 20050101
  3. LEVOTHYROXINE SODIUM [Concomitant]
  4. DEZACOR (DEFLAZACORT) [Concomitant]
  5. PEGASYS [Suspect]
     Indication: HEPATITIS C
     Dosage: (D)
     Dates: start: 20041016
  6. PROZAC [Suspect]
     Indication: DEPRESSION
     Dosage: 20 MG (20 MG,1 IN 1 D) ORAL
     Route: 048
     Dates: start: 20040101
  7. RIBAVIRIN [Suspect]
     Indication: HEPATITIS C
     Dosage: (D)
     Dates: start: 20041016

REACTIONS (3)
  - FALL [None]
  - SOMNOLENCE [None]
  - UNRESPONSIVE TO STIMULI [None]
